FAERS Safety Report 10043461 (Version 5)
Quarter: 2018Q4

REPORT INFORMATION
  Report Type: Spontaneous
  Country: US (occurrence: US)
  Receive Date: 20140328
  Receipt Date: 20181121
  Transmission Date: 20190204
  Serious: No
  Sender: FDA-Public Use
  Company Number: US-PFIZER INC-2014085147

PATIENT
  Age: 71 Year
  Sex: Male
  Weight: 90.7 kg

DRUGS (10)
  1. MELOXICAM. [Concomitant]
     Active Substance: MELOXICAM
     Indication: ROTATOR CUFF SYNDROME
     Dosage: 15 MG, 1X/DAY
  2. ALPRAZOLAM. [Concomitant]
     Active Substance: ALPRAZOLAM
     Indication: ANXIETY
     Dosage: 1 MG, 1X/DAY
     Dates: start: 20140307
  3. METFORMIN [Concomitant]
     Active Substance: METFORMIN HYDROCHLORIDE
     Indication: DIABETES MELLITUS
     Dosage: 500 MG, 2X/DAY
     Dates: start: 20140307
  4. LYRICA [Concomitant]
     Active Substance: PREGABALIN
     Indication: NEUROPATHY PERIPHERAL
     Dosage: UNK
  5. GABAPENTIN. [Suspect]
     Active Substance: GABAPENTIN
     Indication: DIABETIC NEUROPATHY
     Dosage: 600 MG, 3X/DAY
     Route: 048
     Dates: start: 20140307
  6. COSTART [Concomitant]
     Indication: BLOOD CHOLESTEROL INCREASED
     Dosage: 10 MG, UNK
  7. METOPROLOL. [Concomitant]
     Active Substance: METOPROLOL
     Dosage: 50 MG, 1X/DAY
  8. LISINOPRIL. [Concomitant]
     Active Substance: LISINOPRIL
     Dosage: 20 MG, 1X/DAY
  9. ASPIRIN. [Concomitant]
     Active Substance: ASPIRIN
     Dosage: 81 MG, UNK
  10. GABAPENTIN. [Suspect]
     Active Substance: GABAPENTIN
     Indication: NERVE COMPRESSION

REACTIONS (13)
  - Blood glucose abnormal [Unknown]
  - Nightmare [Unknown]
  - Insomnia [Unknown]
  - Burning sensation [Unknown]
  - Dizziness [Unknown]
  - Condition aggravated [Unknown]
  - Fatigue [Unknown]
  - Paraesthesia [Unknown]
  - Muscle spasms [Unknown]
  - Drug intolerance [Unknown]
  - Neuralgia [Unknown]
  - Drug ineffective for unapproved indication [Unknown]
  - Pain in extremity [Unknown]

NARRATIVE: CASE EVENT DATE: 201403
